FAERS Safety Report 13721267 (Version 1)
Quarter: 2017Q3

REPORT INFORMATION
  Report Type: Spontaneous
  Country: US (occurrence: US)
  Receive Date: 20170705
  Receipt Date: 20170705
  Transmission Date: 20171127
  Serious: Yes (Death)
  Sender: FDA-Public Use
  Company Number: None

PATIENT
  Age: 41 Year
  Sex: Female
  Weight: 110.2 kg

DRUGS (10)
  1. ZOLOFT [Concomitant]
     Active Substance: SERTRALINE HYDROCHLORIDE
  2. OXYCODONE AND ACETAMINOPHEN [Suspect]
     Active Substance: ACETAMINOPHEN\OXYCODONE HYDROCHLORIDE
     Indication: PROCEDURAL PAIN
     Dosage: ?          OTHER STRENGTH:MG;QUANTITY:60 TABLET(S);?
     Route: 048
     Dates: start: 20170412, end: 20170413
  3. CLARITIN [Concomitant]
     Active Substance: LORATADINE
  4. AMBIEN [Concomitant]
     Active Substance: ZOLPIDEM TARTRATE
  5. MORPHINE SR 15MG ER TAB MAL [Suspect]
     Active Substance: MORPHINE
     Indication: PROCEDURAL PAIN
     Dosage: ?          OTHER STRENGTH:MG;QUANTITY:28 TABLET(S);?
     Route: 048
     Dates: start: 20170412, end: 20170413
  6. MORPHINE SR 15MG ER TAB MAL [Suspect]
     Active Substance: MORPHINE
     Indication: FOOT OPERATION
     Dosage: ?          OTHER STRENGTH:MG;QUANTITY:28 TABLET(S);?
     Route: 048
     Dates: start: 20170412, end: 20170413
  7. OXYCODONE AND ACETAMINOPHEN [Suspect]
     Active Substance: ACETAMINOPHEN\OXYCODONE HYDROCHLORIDE
     Indication: FOOT OPERATION
     Dosage: ?          OTHER STRENGTH:MG;QUANTITY:60 TABLET(S);?
     Route: 048
     Dates: start: 20170412, end: 20170413
  8. KLONOPIN [Concomitant]
     Active Substance: CLONAZEPAM
  9. CENTRUM VITAMINS LIQUID [Concomitant]
     Active Substance: VITAMINS
  10. SINGULAIR [Concomitant]
     Active Substance: MONTELUKAST SODIUM

REACTIONS (3)
  - Cardiac arrest [None]
  - Respiratory arrest [None]
  - Circulatory collapse [None]

NARRATIVE: CASE EVENT DATE: 20170413
